FAERS Safety Report 20362403 (Version 1)
Quarter: 2022Q1

REPORT INFORMATION
  Report Type: Spontaneous
  Country: RO (occurrence: None)
  Receive Date: 20220121
  Receipt Date: 20220121
  Transmission Date: 20220423
  Serious: Yes (Other)
  Sender: FDA-Public Use
  Company Number: 2022A028433

PATIENT
  Age: 74 Year
  Sex: Male

DRUGS (6)
  1. TICAGRELOR [Suspect]
     Active Substance: TICAGRELOR
     Indication: Acute coronary syndrome
     Route: 048
  2. METOPROLOL SUCCINATE [Concomitant]
     Active Substance: METOPROLOL SUCCINATE
     Route: 065
  3. ASPIRIN [Concomitant]
     Active Substance: ASPIRIN
     Route: 065
  4. ATORVASTATIN [Concomitant]
     Active Substance: ATORVASTATIN
     Route: 065
  5. RAMIPRIL [Concomitant]
     Active Substance: RAMIPRIL
     Route: 065
  6. TICAGRELOR [Concomitant]
     Active Substance: TICAGRELOR
     Route: 065

REACTIONS (7)
  - Angina pectoris [Unknown]
  - Acute myocardial infarction [Unknown]
  - Arterial thrombosis [Unknown]
  - Cardiac failure [Unknown]
  - Mitral valve incompetence [Unknown]
  - Dyslipidaemia [Unknown]
  - Body mass index increased [Unknown]
